FAERS Safety Report 10078729 (Version 1)
Quarter: 2014Q2

REPORT INFORMATION
  Report Type: Spontaneous
  Country: FR (occurrence: FR)
  Receive Date: 20140415
  Receipt Date: 20140415
  Transmission Date: 20141212
  Serious: Yes (Life-Threatening, Other)
  Sender: FDA-Public Use
  Company Number: FR-PFIZER INC-2014104100

PATIENT
  Age: 89 Year
  Sex: Female

DRUGS (7)
  1. CORDARONE [Suspect]
     Indication: CARDIAC FAILURE
     Dosage: 200 MG, DAILY
     Route: 048
     Dates: start: 20140225, end: 20140303
  2. LASILIX SPECIAL [Suspect]
     Indication: CARDIAC FAILURE
     Dosage: 500 MG, DAILY
     Route: 048
     Dates: start: 201401
  3. TEMERIT [Suspect]
     Indication: ATRIAL FIBRILLATION
     Dosage: 5 MG, DAILY
     Route: 048
     Dates: end: 201403
  4. TAHOR [Concomitant]
     Dosage: UNK
  5. AMLOR [Concomitant]
     Dosage: UNK
  6. PRADAXA [Concomitant]
     Dosage: UNK
     Dates: start: 201312, end: 20140306
  7. LEVOTHYROX [Concomitant]
     Dosage: UNK

REACTIONS (10)
  - Electrocardiogram QT prolonged [Recovered/Resolved]
  - Hypokalaemia [Recovered/Resolved]
  - Loss of consciousness [Unknown]
  - Cardiac failure [Recovering/Resolving]
  - Fall [Unknown]
  - Haematoma [Unknown]
  - Pain in extremity [Unknown]
  - Pelvic pain [Unknown]
  - Arthralgia [Unknown]
  - Blood creatine increased [Unknown]
